FAERS Safety Report 25946778 (Version 1)
Quarter: 2025Q4

REPORT INFORMATION
  Report Type: Spontaneous
  Country: GB (occurrence: GB)
  Receive Date: 20251022
  Receipt Date: 20251022
  Transmission Date: 20260118
  Serious: Yes (Other)
  Sender: AUROBINDO
  Company Number: GB-GSKCCFEMEA-Case-01932991_AE-81270

PATIENT
  Age: 56 Year
  Sex: Female
  Weight: 128 kg

DRUGS (13)
  1. QUETIAPINE [Suspect]
     Active Substance: QUETIAPINE
     Indication: Product used for unknown indication
     Dosage: UNK
     Route: 065
  2. PAROXETINE HYDROCHLORIDE [Suspect]
     Active Substance: PAROXETINE HYDROCHLORIDE
     Indication: Depression
     Dosage: 20 MILLIGRAM
     Route: 048
  3. CARBAMAZEPINE [Concomitant]
     Active Substance: CARBAMAZEPINE
     Indication: Product used for unknown indication
     Dosage: 100 MILLIGRAM, TWO TIMES A DAY
     Route: 065
     Dates: end: 202502
  4. CARBAMAZEPINE [Concomitant]
     Active Substance: CARBAMAZEPINE
     Dosage: 100 MILLIGRAM, TWO TIMES A DAY
     Route: 065
     Dates: start: 202502
  5. Lofepramin [Concomitant]
     Indication: Product used for unknown indication
     Dosage: 70 MILLIGRAM, ONCE A DAY
     Route: 065
  6. Lofepramin [Concomitant]
     Dosage: 70 MILLIGRAM, AT BED TIME
     Route: 065
  7. OLANZAPINE [Concomitant]
     Active Substance: OLANZAPINE
     Indication: Product used for unknown indication
     Dosage: 10 MILLIGRAM, TWO TIMES A DAY
     Route: 065
  8. LAMOTRIGINE [Concomitant]
     Active Substance: LAMOTRIGINE
     Indication: Product used for unknown indication
     Dosage: 200 MILLIGRAM, ONCE A DAY
     Route: 065
  9. DIAZEPAM [Concomitant]
     Active Substance: DIAZEPAM
     Indication: Product used for unknown indication
     Dosage: 2 MILLIGRAM, AS NECESSARY
     Route: 065
  10. FLUOXETINE [Concomitant]
     Active Substance: FLUOXETINE HYDROCHLORIDE
     Indication: Product used for unknown indication
     Dosage: 40 MILLIGRAM, ONCE A DAY
     Route: 065
  11. LITHIUM CARBONATE [Concomitant]
     Active Substance: LITHIUM CARBONATE
     Indication: Product used for unknown indication
     Dosage: 800 MILLIGRAM
     Route: 065
  12. FLUOXETINE [Concomitant]
     Active Substance: FLUOXETINE HYDROCHLORIDE
     Indication: Product used for unknown indication
     Dosage: 2 DOSAGE FORM, ONCE A DAY
     Route: 065
  13. FEXOFENADINE [Concomitant]
     Active Substance: FEXOFENADINE HYDROCHLORIDE
     Indication: Product used for unknown indication
     Dosage: 1 DOSAGE FORM, ONCE A DAY
     Route: 065

REACTIONS (18)
  - Suicide attempt [Unknown]
  - Bipolar disorder [Unknown]
  - Psychotic disorder [Unknown]
  - Personality change [Unknown]
  - Promiscuity [Unknown]
  - Psychiatric symptom [Unknown]
  - Panic attack [Unknown]
  - Dysphagia [Unknown]
  - Throat tightness [Unknown]
  - Neck pain [Unknown]
  - Back pain [Unknown]
  - Visual impairment [Unknown]
  - Adverse drug reaction [Unknown]
  - Hypoaesthesia oral [Unknown]
  - Loss of personal independence in daily activities [Unknown]
  - Abortion induced [Unknown]
  - Overdose [Unknown]
  - Exposure during pregnancy [Unknown]
